FAERS Safety Report 24645189 (Version 1)
Quarter: 2024Q4

REPORT INFORMATION
  Report Type: Spontaneous
  Country: US (occurrence: US)
  Receive Date: 20241121
  Receipt Date: 20241121
  Transmission Date: 20250114
  Serious: No
  Sender: ELI LILLY AND COMPANY
  Company Number: US-ELI_LILLY_AND_COMPANY-US202411012252

PATIENT
  Age: 61 Year
  Sex: Female

DRUGS (1)
  1. VERZENIO [Suspect]
     Active Substance: ABEMACICLIB
     Indication: Cholangiocarcinoma
     Dosage: 100 MG, BID
     Route: 048

REACTIONS (6)
  - Pain [Unknown]
  - Dyspnoea [Unknown]
  - Off label use [Unknown]
  - Dehydration [Unknown]
  - Fatigue [Unknown]
  - Nausea [Unknown]
